FAERS Safety Report 5103593-4 (Version None)
Quarter: 2006Q3

REPORT INFORMATION
  Report Type: 
  Country: None (occurrence: None)
  Receive Date: 20060913
  Receipt Date: 20060904
  Transmission Date: 20061208
  Serious: Yes (Hospitalization, Other)
  Sender: FDA-Public Use
  Company Number: PHHO2006CL14757

PATIENT
  Age: 50 Year
  Sex: Female

DRUGS (2)
  1. ENALAPRIL [Concomitant]
     Indication: HYPERTENSION
  2. ZELMAC / HTF 919A [Suspect]
     Indication: PAIN
     Dosage: 6 MG, QD
     Route: 048
     Dates: start: 20060706, end: 20060825

REACTIONS (1)
  - CEREBRAL INFARCTION [None]
